FAERS Safety Report 4728118-4 (Version None)
Quarter: 2005Q3

REPORT INFORMATION
  Report Type: 
  Country: None (occurrence: None)
  Receive Date: 20050728
  Receipt Date: 20050728
  Transmission Date: 20060218
  Serious: Yes (Other)
  Sender: FDA-Public Use
  Company Number: None

PATIENT
  Sex: Female
  Weight: 84.5958 kg

DRUGS (4)
  1. METOPROLOL 50MG TEVAU [Suspect]
     Indication: HYPERTENSION
     Dosage: 25 MG TWICE DAY ORAL
     Route: 048
     Dates: start: 20050703, end: 20050707
  2. FUROSEMIDE [Concomitant]
  3. MELOXICAM [Concomitant]
  4. IRBESARTAN [Concomitant]

REACTIONS (1)
  - DIARRHOEA [None]
